FAERS Safety Report 5490482-9 (Version None)
Quarter: 2007Q4

REPORT INFORMATION
  Report Type: 
  Country: None (occurrence: None)
  Receive Date: 20071017
  Receipt Date: 20071017
  Transmission Date: 20080405
  Serious: Yes (Hospitalization)
  Sender: FDA-Public Use
  Company Number: None

PATIENT
  Sex: Male
  Weight: 131.0895 kg

DRUGS (11)
  1. LANTUS [Suspect]
     Indication: DIABETES MELLITUS
     Dosage: 85 UNITS QD AM SQ
     Route: 058
     Dates: start: 20071016, end: 20071016
  2. LAMICTAL [Concomitant]
  3. COUMADIN [Concomitant]
  4. HUMALOG [Concomitant]
  5. AVANDIA [Concomitant]
  6. UROXATAL [Concomitant]
  7. TARKA [Concomitant]
  8. LYRICA [Concomitant]
  9. LIPITOR [Concomitant]
  10. FENTANYL [Concomitant]
  11. CLONAZEPAM [Concomitant]

REACTIONS (3)
  - CONFUSIONAL STATE [None]
  - DEVICE MALFUNCTION [None]
  - INCORRECT DOSE ADMINISTERED [None]
